FAERS Safety Report 5230006-4 (Version None)
Quarter: 2007Q1

REPORT INFORMATION
  Report Type: 
  Country: None (occurrence: None)
  Receive Date: 20070206
  Receipt Date: 20060825
  Transmission Date: 20070707
  Serious: No
  Sender: FDA-Public Use
  Company Number: 2006-02452

PATIENT
  Age: 67 Year
  Sex: Female
  Weight: 63.6 kg

DRUGS (2)
  1. PAXIL [Suspect]
     Indication: DEPRESSION
     Route: 048
  2. CLONAZEPAM [Suspect]
     Indication: INSOMNIA
     Dosage: 2MG AT NIGHT
     Route: 048
     Dates: start: 20060101

REACTIONS (2)
  - DRUG INTERACTION [None]
  - INSOMNIA [None]
